FAERS Safety Report 14127137 (Version 2)
Quarter: 2017Q4

REPORT INFORMATION
  Report Type: Spontaneous
  Country: IT (occurrence: IT)
  Receive Date: 20171026
  Receipt Date: 20171108
  Transmission Date: 20180321
  Serious: Yes (Death, Other)
  Sender: FDA-Public Use
  Company Number: IT-CIPLA LTD.-2017IT18799

PATIENT

DRUGS (8)
  1. PACLITAXEL. [Suspect]
     Active Substance: PACLITAXEL
     Indication: LUNG SQUAMOUS CELL CARCINOMA STAGE IV
     Dosage: 175 MG/M2 ON DAY 1, EVERY 21 DAYS
     Route: 065
     Dates: start: 200810, end: 2008
  2. PEMETREXED. [Suspect]
     Active Substance: PEMETREXED
     Indication: METASTASES TO CENTRAL NERVOUS SYSTEM
  3. ERLOTINIB [Suspect]
     Active Substance: ERLOTINIB
     Indication: LUNG SQUAMOUS CELL CARCINOMA STAGE IV
     Dosage: 150 MG, PER DAY
     Route: 065
     Dates: start: 200902, end: 201509
  4. CARBOPLATIN. [Suspect]
     Active Substance: CARBOPLATIN
     Indication: LUNG SQUAMOUS CELL CARCINOMA STAGE IV
     Dosage: AREA UNDER THE CURVE 5
     Route: 065
     Dates: start: 200810, end: 2008
  5. ERLOTINIB [Suspect]
     Active Substance: ERLOTINIB
     Indication: METASTASES TO CENTRAL NERVOUS SYSTEM
     Dosage: 100 MG, PER DAY
     Route: 065
  6. CARBOPLATIN. [Suspect]
     Active Substance: CARBOPLATIN
     Indication: METASTASES TO CENTRAL NERVOUS SYSTEM
  7. PACLITAXEL. [Suspect]
     Active Substance: PACLITAXEL
     Indication: METASTASES TO CENTRAL NERVOUS SYSTEM
  8. PEMETREXED. [Suspect]
     Active Substance: PEMETREXED
     Indication: LUNG SQUAMOUS CELL CARCINOMA STAGE IV
     Dosage: 500 MG/M2, ON DAY 1, EVERY 21 DAYS
     Route: 065
     Dates: start: 200812

REACTIONS (7)
  - Road traffic accident [Fatal]
  - Asthenia [Unknown]
  - Disease progression [Unknown]
  - Rash [Unknown]
  - Leukopenia [Unknown]
  - Toxicity to various agents [Unknown]
  - Neuropathy peripheral [Unknown]

NARRATIVE: CASE EVENT DATE: 2008
